FAERS Safety Report 5062625-2 (Version None)
Quarter: 2006Q3

REPORT INFORMATION
  Report Type: 
  Country: None (occurrence: None)
  Receive Date: 20060724
  Receipt Date: 20050922
  Transmission Date: 20061208
  Serious: Yes (Hospitalization)
  Sender: FDA-Public Use
  Company Number: DE-2004-032362

PATIENT
  Age: 47 Year
  Sex: Female

DRUGS (1)
  1. INTERFERON BETA-1B INJECTION, 250UG [Suspect]
     Indication: CARDIOMYOPATHY
     Dosage: 8 MIU, EVERY 2D, SUBCUTANEOUS
     Route: 058
     Dates: start: 20040408

REACTIONS (3)
  - ATRIOVENTRICULAR BLOCK SECOND DEGREE [None]
  - DISEASE PROGRESSION [None]
  - SYNCOPE [None]
